FAERS Safety Report 6873007-2 (Version None)
Quarter: 2010Q3

REPORT INFORMATION
  Report Type: 
  Country: None (occurrence: None)
  Receive Date: 20100721
  Receipt Date: 20100713
  Transmission Date: 20110219
  Serious: Yes (Hospitalization, Other)
  Sender: FDA-Public Use
  Company Number: 20108953

PATIENT
  Age: 44 Year
  Sex: Male

DRUGS (4)
  1. LIORESAL [Suspect]
     Indication: MUSCLE SPASTICITY
     Dosage: MCG, DAILY, INTRATHECAL
     Route: 037
  2. HYDROMORPHONE [Concomitant]
  3. SUFENTANIL [Concomitant]
  4. CLONIDINE [Concomitant]

REACTIONS (3)
  - IMPLANT SITE REACTION [None]
  - PANCREATITIS CHRONIC [None]
  - WOUND INFECTION [None]
